FAERS Safety Report 7949488-X (Version None)
Quarter: 2011Q4

REPORT INFORMATION
  Report Type: 
  Country: None (occurrence: None)
  Receive Date: 20111123
  Receipt Date: 20111115
  Transmission Date: 20120403
  Serious: Yes (Hospitalization)
  Sender: FDA-Public Use
  Company Number: 2011-4647

PATIENT
  Age: 9 Year
  Sex: Male
  Weight: 24.4 kg

DRUGS (2)
  1. INCRELEX [Suspect]
     Indication: GROWTH HORMONE DEFICIENCY
     Dosage: 56 UNITS (56 UNITS, 1 IN 1 D)
     Dates: start: 20110601
  2. VYVANSE (DUROPHET /00124501/) [Concomitant]

REACTIONS (3)
  - RHINORRHOEA [None]
  - PNEUMONIA [None]
  - VOMITING [None]
